FAERS Safety Report 15725675 (Version 4)
Quarter: 2019Q2

REPORT INFORMATION
  Report Type: Report from Study
  Country: US (occurrence: US)
  Receive Date: 20181215
  Receipt Date: 20190607
  Transmission Date: 20190711
  Serious: Yes (Hospitalization, Other)
  Sender: FDA-Public Use
  Company Number: US-ACTELION-A-NJ2018-179211

PATIENT
  Age: 64 Year
  Sex: Female
  Weight: 142.86 kg

DRUGS (3)
  1. OPSUMIT [Suspect]
     Active Substance: MACITENTAN
     Indication: PULMONARY ARTERIAL HYPERTENSION
     Dosage: 10 MG, QD
     Route: 048
  2. REVATIO [Concomitant]
     Active Substance: SILDENAFIL CITRATE
  3. COUMADIN [Concomitant]
     Active Substance: WARFARIN SODIUM

REACTIONS (7)
  - Rehabilitation therapy [Unknown]
  - Skin ulcer [Unknown]
  - Dialysis [Unknown]
  - Infected skin ulcer [Unknown]
  - Hypotension [Not Recovered/Not Resolved]
  - Decubitus ulcer [Unknown]
  - Localised infection [Unknown]

NARRATIVE: CASE EVENT DATE: 201808
